FAERS Safety Report 26124225 (Version 3)
Quarter: 2025Q4

REPORT INFORMATION
  Report Type: Spontaneous
  Country: GB (occurrence: GB)
  Receive Date: 20251205
  Receipt Date: 20251226
  Transmission Date: 20260117
  Serious: Yes (Congenital Anomaly, Other)
  Sender: TEVA
  Company Number: None

PATIENT
  Weight: 80 kg

DRUGS (18)
  1. ALBUTEROL [Suspect]
     Active Substance: ALBUTEROL
     Indication: Adverse drug reaction
     Dosage: TIME INTERVAL: AS NECESSARY: PUFFS
     Route: 065
     Dates: start: 20240528
  2. ALBUTEROL [Suspect]
     Active Substance: ALBUTEROL
     Indication: Asthma
  3. SENNA [Suspect]
     Active Substance: SENNOSIDES
     Indication: Constipation
     Dosage: TIME INTERVAL: AS NECESSARY: AT NIGHT
     Route: 065
     Dates: start: 20240731
  4. QUETIAPINE [Suspect]
     Active Substance: QUETIAPINE
     Indication: Anxiety
     Dosage: AT NIGHT
     Route: 065
     Dates: start: 20150120
  5. CLOTRIMAZOLE [Suspect]
     Active Substance: CLOTRIMAZOLE
     Indication: Vulvovaginal candidiasis
     Dosage: AT NIGHT FOR 6 NIGHTS
     Route: 065
     Dates: start: 20250804, end: 20250811
  6. VITAMIN D3 [Suspect]
     Active Substance: CHOLECALCIFEROL
     Indication: Pregnancy
     Route: 065
     Dates: start: 20250320
  7. AMOXICILLIN [Suspect]
     Active Substance: AMOXICILLIN
     Indication: Upper respiratory tract infection
     Dosage: TIME INTERVAL: 0.33333333 DAYS: GENERICS UK AMOXICILLIN, FOR 1 WEEK
     Route: 065
     Dates: start: 20250925, end: 20251002
  8. DISODIUM HYDROGEN CITRATE\SODIUM LAURYL SULFATE [Suspect]
     Active Substance: DISODIUM HYDROGEN CITRATE\SODIUM LAURYL SULFATE
     Indication: Constipation
     Dosage: TIME INTERVAL: AS NECESSARY
     Route: 054
     Dates: start: 20250807
  9. ENOXAPARIN SODIUM [Suspect]
     Active Substance: ENOXAPARIN SODIUM
     Indication: Pregnancy with advanced maternal age
     Route: 065
     Dates: start: 20250514
  10. BECLOMETHASONE DIPROPIONATE [Suspect]
     Active Substance: BECLOMETHASONE DIPROPIONATE
     Indication: Adverse drug reaction
     Route: 065
     Dates: start: 20240528
  11. OMEPRAZOLE [Suspect]
     Active Substance: OMEPRAZOLE
     Indication: Product used for unknown indication
     Route: 065
     Dates: start: 20240731
  12. POLYETHYLENE GLYCOLS [Suspect]
     Active Substance: POLYETHYLENE GLYCOLS
     Indication: Constipation
     Dosage: 1-2 SACHETS DAILY; DEVICE
     Route: 065
     Dates: start: 20250409
  13. LACTULOSE [Suspect]
     Active Substance: LACTULOSE
     Indication: Constipation
     Route: 065
     Dates: start: 20250409
  14. MIRTAZAPINE [Suspect]
     Active Substance: MIRTAZAPINE
     Indication: Depression
     Dosage: AT NIGHT
     Route: 065
     Dates: start: 20220615
  15. DULOXETINE [Suspect]
     Active Substance: DULOXETINE
     Indication: Depression
     Route: 065
     Dates: start: 20230223
  16. FOLIC ACID [Suspect]
     Active Substance: FOLIC ACID
     Indication: Vitamin supplementation
     Route: 065
  17. ACETAMINOPHEN [Suspect]
     Active Substance: ACETAMINOPHEN
     Indication: Product used for unknown indication
     Dosage: IN 1ST TRIMESTER ONLY
     Route: 065
  18. NITROFURANTOIN [Suspect]
     Active Substance: NITROFURANTOIN
     Indication: Product used for unknown indication
     Dosage: IN 1ST TRIMESTER ONLY
     Route: 065

REACTIONS (2)
  - Cleft palate [Not Recovered/Not Resolved]
  - Foetal exposure during pregnancy [Unknown]

NARRATIVE: CASE EVENT DATE: 20251101
